FAERS Safety Report 14995198 (Version 2)
Quarter: 2023Q2

REPORT INFORMATION
  Report Type: Report from Study
  Country: DE (occurrence: DE)
  Receive Date: 20180611
  Receipt Date: 20230615
  Transmission Date: 20230722
  Serious: Yes (Death, Other)
  Sender: FDA-Public Use
  Company Number: DE-BAYER-2018-106222

PATIENT
  Age: 33 Year
  Sex: Female

DRUGS (3)
  1. GADOBUTROL [Suspect]
     Active Substance: GADOBUTROL
     Indication: Magnetic resonance imaging head
     Dosage: UNK, ONCE
     Route: 042
  2. GADOBUTROL [Suspect]
     Active Substance: GADOBUTROL
     Indication: Magnetic resonance imaging head
     Dosage: UNK
  3. GADODIAMIDE [Suspect]
     Active Substance: GADODIAMIDE
     Indication: Magnetic resonance imaging head
     Dosage: UNK UNK, ONCE
     Route: 042

REACTIONS (5)
  - Nephrogenic systemic fibrosis [Fatal]
  - Arrhythmia [Fatal]
  - Muscle fibrosis [Fatal]
  - Contrast media deposition [None]
  - Joint contracture [None]
